FAERS Safety Report 5413765-7 (Version None)
Quarter: 2007Q3

REPORT INFORMATION
  Report Type: 
  Country: None (occurrence: None)
  Receive Date: 20070814
  Receipt Date: 20070801
  Transmission Date: 20080115
  Serious: Yes (Other)
  Sender: FDA-Public Use
  Company Number: CA-ELI_LILLY_AND_COMPANY-CA200708001635

PATIENT
  Age: 47 Year
  Sex: Female
  Weight: 50 kg

DRUGS (6)
  1. PEMETREXED [Suspect]
     Indication: NON-SMALL CELL LUNG CANCER
     Dosage: 500 MG, OTHER
     Route: 042
     Dates: start: 20061220, end: 20070412
  2. *CISPLATIN [Suspect]
     Indication: NON-SMALL CELL LUNG CANCER
     Dosage: 25 MG, OTHER
     Route: 042
     Dates: start: 20061220, end: 20070412
  3. *CISPLATIN [Suspect]
     Dosage: 75 MG, OTHER
     Route: 042
     Dates: end: 20070412
  4. *RADIATION [Suspect]
     Indication: NON-SMALL CELL LUNG CANCER
     Dosage: 66 UNK, UNK
     Dates: start: 20061220, end: 20070412
  5. CODEINE SUL TAB [Concomitant]
     Indication: COUGH
     Dates: start: 20061207
  6. FENTANYL [Concomitant]
     Indication: ODYNOPHAGIA
     Dates: start: 20070118

REACTIONS (1)
  - MYELODYSPLASTIC SYNDROME [None]
